FAERS Safety Report 22180284 (Version 1)
Quarter: 2023Q2

REPORT INFORMATION
  Report Type: Spontaneous
  Country: US (occurrence: US)
  Receive Date: 20230406
  Receipt Date: 20230406
  Transmission Date: 20230721
  Serious: No
  Sender: FDA-Public Use
  Company Number: US-PFIZER INC-202300141789

PATIENT
  Age: 38 Year
  Sex: Female

DRUGS (1)
  1. LONITEN [Suspect]
     Active Substance: MINOXIDIL
     Dosage: UNK
     Dates: start: 202212, end: 202304

REACTIONS (5)
  - Rash erythematous [Unknown]
  - Pruritus [Unknown]
  - Skin exfoliation [Unknown]
  - Dry skin [Unknown]
  - Rash papular [Unknown]
